FAERS Safety Report 7205623-2 (Version None)
Quarter: 2010Q4

REPORT INFORMATION
  Report Type: 
  Country: None (occurrence: None)
  Receive Date: 20101231
  Receipt Date: 20101221
  Transmission Date: 20110411
  Serious: No
  Sender: FDA-Public Use
  Company Number: US-PFIZER INC-2010177597

PATIENT
  Sex: Female

DRUGS (2)
  1. CELEBREX [Suspect]
     Dosage: UNK
  2. REVLIMID [Suspect]
     Dosage: UNK

REACTIONS (2)
  - RED BLOOD CELL COUNT INCREASED [None]
  - RENAL DISORDER [None]
